FAERS Safety Report 15023126 (Version 1)
Quarter: 2018Q2

REPORT INFORMATION
  Report Type: Spontaneous
  Country: US (occurrence: US)
  Receive Date: 20180602
  Receipt Date: 20180602
  Transmission Date: 20180711
  Serious: Yes (Disabling)
  Sender: FDA-Public Use
  Company Number: None

PATIENT
  Age: 35 Year
  Sex: Female
  Weight: 90 kg

DRUGS (8)
  1. EFFEXOR XR [Suspect]
     Active Substance: VENLAFAXINE HYDROCHLORIDE
     Indication: DEPRESSION
     Dosage: ?          QUANTITY:2 CAPSULE(S);?
     Route: 048
     Dates: start: 20080731, end: 20161031
  2. LISINOPRIL. [Concomitant]
     Active Substance: LISINOPRIL
  3. EFFEXOR XR [Suspect]
     Active Substance: VENLAFAXINE HYDROCHLORIDE
     Indication: DEPRESSION
     Dosage: ?          QUANTITY:1 CAPSULE(S);?
     Route: 048
     Dates: start: 20080731, end: 20161031
  4. PROPRANOLOL [Concomitant]
     Active Substance: PROPRANOLOL HYDROCHLORIDE
  5. WELLBUTRIN [Concomitant]
     Active Substance: BUPROPION HYDROCHLORIDE
  6. AVIANE [Concomitant]
     Active Substance: ETHINYL ESTRADIOL\LEVONORGESTREL
  7. TYLENOL [Concomitant]
     Active Substance: ACETAMINOPHEN
  8. LITHIUM. [Concomitant]
     Active Substance: LITHIUM

REACTIONS (14)
  - Incontinence [None]
  - Paraesthesia [None]
  - Movement disorder [None]
  - Affect lability [None]
  - Dizziness [None]
  - External ear cellulitis [None]
  - Ear disorder [None]
  - Loss of employment [None]
  - Hyperhidrosis [None]
  - Initial insomnia [None]
  - Sleep study abnormal [None]
  - Hypertension [None]
  - Eczema [None]
  - Hypersomnia [None]

NARRATIVE: CASE EVENT DATE: 20151001
